FAERS Safety Report 24795454 (Version 1)
Quarter: 2024Q4

REPORT INFORMATION
  Report Type: Spontaneous
  Country: US (occurrence: None)
  Receive Date: 20241231
  Receipt Date: 20241231
  Transmission Date: 20250114
  Serious: Yes (Hospitalization)
  Sender: Public
  Company Number: None

PATIENT
  Age: 60 Year
  Sex: 0
  Weight: 85.5 kg

DRUGS (1)
  1. GAMUNEX-C [Suspect]
     Active Substance: HUMAN IMMUNOGLOBULIN G
     Indication: Chronic inflammatory demyelinating polyradiculoneuropathy
     Dosage: 45 G GRAM(S) EVERY 2 WEEKS INTRAVENOUS?
     Route: 042
     Dates: start: 20241219, end: 20241219

REACTIONS (1)
  - Chest pain [None]

NARRATIVE: CASE EVENT DATE: 20241219
